FAERS Safety Report 8573527-9 (Version None)
Quarter: 2012Q3

REPORT INFORMATION
  Report Type: 
  Country: None (occurrence: None)
  Receive Date: 20120806
  Receipt Date: 20120730
  Transmission Date: 20120928
  Serious: Yes (Hospitalization)
  Sender: FDA-Public Use
  Company Number: US-TEVA-344609USA

PATIENT
  Age: 68 Year
  Sex: Female
  Weight: 105 kg

DRUGS (21)
  1. IBUPROFEN [Concomitant]
     Dates: start: 19920101
  2. LOPERAMIDE [Concomitant]
     Dates: start: 20091001
  3. POTASSIUM CHLORIDE [Concomitant]
     Dates: start: 20090101
  4. ONDANSETRON [Concomitant]
     Dates: start: 20090101
  5. GENESA [Concomitant]
     Dates: start: 20091101
  6. SERTRALINE [Concomitant]
     Dates: start: 20090901
  7. LACTOBACILLUS ACIDOPHILUS [Concomitant]
     Dates: start: 20100101
  8. PROCHLORPERAZINE MALEATE [Concomitant]
     Dates: start: 20090101
  9. ACYCLOVIR [Concomitant]
     Dates: start: 20091201
  10. TYLOX [Concomitant]
     Dates: start: 20111018
  11. OMEPRAZOLE [Concomitant]
     Dates: start: 20090930
  12. LORAZEPAM [Concomitant]
     Dates: start: 20091119
  13. RITUXIMAB [Suspect]
     Indication: NON-HODGKIN'S LYMPHOMA
     Dosage: DAY 1 OF EACH 28 DAY CYCLE,
     Route: 042
     Dates: start: 20120327, end: 20120327
  14. METOPROLOL SUCCINATE [Concomitant]
     Dates: start: 20120326
  15. TREANDA [Suspect]
     Indication: NON-HODGKIN'S LYMPHOMA
     Dosage: DAY 1 AND 2 OF EACH 28 DAY CYCLE
     Route: 042
     Dates: start: 20120327, end: 20120328
  16. COLECALCIFEROL [Concomitant]
     Dates: start: 20090101
  17. ZINC SULFATE [Concomitant]
     Dates: start: 20090101
  18. GENISTEIN [Concomitant]
     Dates: start: 20090101
  19. ALLOPURINOL [Concomitant]
     Dates: start: 20120325
  20. FUROSEMIDE [Concomitant]
     Dates: start: 20090101
  21. LEVOTHYROXINE SODIUM [Concomitant]
     Dates: start: 20020101

REACTIONS (2)
  - HYPOTENSION [None]
  - PANCYTOPENIA [None]
